FAERS Safety Report 5332668-X (Version None)
Quarter: 2007Q2

REPORT INFORMATION
  Report Type: 
  Country: None (occurrence: None)
  Receive Date: 20070523
  Receipt Date: 20070522
  Transmission Date: 20071010
  Serious: Yes (Hospitalization, Other)
  Sender: FDA-Public Use
  Company Number: US-PFIZER INC-2007029013

PATIENT
  Age: 55 Year
  Sex: Female
  Weight: 52.2 kg

DRUGS (7)
  1. CHANTIX [Suspect]
     Indication: SMOKING CESSATION THERAPY
     Route: 048
     Dates: start: 20070315, end: 20070319
  2. BENICAR HCT [Suspect]
     Indication: HYPERTENSION
  3. PREDNISONE TAB [Concomitant]
     Route: 048
  4. PLAQUENIL [Concomitant]
     Route: 048
  5. LOPRESSOR [Concomitant]
     Route: 048
  6. THIAMIN [Concomitant]
     Route: 048
  7. VITAMIN CAP [Concomitant]
     Route: 048

REACTIONS (7)
  - BLOOD PRESSURE INCREASED [None]
  - COMA [None]
  - DRY MOUTH [None]
  - HYPONATRAEMIA [None]
  - IRON DEFICIENCY ANAEMIA [None]
  - LOSS OF CONSCIOUSNESS [None]
  - NAUSEA [None]
